FAERS Safety Report 23739526 (Version 2)
Quarter: 2024Q2

REPORT INFORMATION
  Report Type: Other
  Country: DE (occurrence: None)
  Receive Date: 20240413
  Receipt Date: 20240508
  Transmission Date: 20240716
  Serious: No
  Sender: FDA-Public Use
  Company Number: DE-ROCHE-3318582

PATIENT
  Age: 53 Year
  Sex: Male

DRUGS (14)
  1. OCRELIZUMAB [Suspect]
     Active Substance: OCRELIZUMAB
     Indication: Relapsing multiple sclerosis
     Route: 042
     Dates: start: 20220927
  2. OCRELIZUMAB [Suspect]
     Active Substance: OCRELIZUMAB
     Route: 042
     Dates: start: 20230414
  3. FENISTIL DRAGEES [Concomitant]
     Route: 048
     Dates: start: 20221011, end: 20221011
  4. DIMETHINDENE [Concomitant]
     Active Substance: DIMETHINDENE
     Route: 048
     Dates: start: 20220927, end: 20220927
  5. DIMETHINDENE [Concomitant]
     Active Substance: DIMETHINDENE
     Route: 048
     Dates: start: 20230414, end: 20230414
  6. DIMETHINDENE [Concomitant]
     Active Substance: DIMETHINDENE
     Route: 048
     Dates: start: 20231009, end: 20231009
  7. DIMETHINDENE [Concomitant]
     Active Substance: DIMETHINDENE
     Route: 048
     Dates: start: 20240409, end: 20240409
  8. PREDNISOLONE [Concomitant]
     Active Substance: PREDNISOLONE
     Route: 042
     Dates: start: 20220927, end: 20220927
  9. VARICELLA-ZOSTER VIRUS STRAIN OKA/MERCK LIVE ANTIGEN [Concomitant]
     Active Substance: VARICELLA-ZOSTER VIRUS STRAIN OKA/MERCK LIVE ANTIGEN
     Indication: Prophylaxis
     Dosage: DOSE FREQUENCY: OTHER
     Route: 030
     Dates: start: 20220816, end: 20220816
  10. BOOSTRIX POLIO [Concomitant]
     Active Substance: DIPHTHERIA AND TETANUS TOXOIDS AND ACELLULAR PERTUSSIS ADSORBED AND INACTIVATED POLIOVIRUS VACCINE
     Indication: Prophylaxis
     Dosage: DOSE: 0.5?DOSE FREQUENCY: OTHER
     Route: 030
     Dates: start: 20220713, end: 20220713
  11. METHYLPREDNISOLUT [Concomitant]
     Route: 042
     Dates: start: 20221011, end: 20221011
  12. METHYLPREDNISOLUT [Concomitant]
     Route: 042
     Dates: start: 20230414, end: 20230414
  13. METHYLPREDNISOLUT [Concomitant]
     Route: 042
     Dates: start: 20231009, end: 20231009
  14. METHYLPREDNISOLUT [Concomitant]
     Route: 042
     Dates: start: 20240409, end: 20240409

REACTIONS (2)
  - Vertigo [Recovered/Resolved]
  - Influenza like illness [Recovered/Resolved]

NARRATIVE: CASE EVENT DATE: 20230206
